FAERS Safety Report 16742709 (Version 3)
Quarter: 2019Q3

REPORT INFORMATION
  Report Type: Spontaneous
  Country: GB (occurrence: GB)
  Receive Date: 20190826
  Receipt Date: 20190910
  Transmission Date: 20191005
  Serious: Yes (Life-Threatening, Hospitalization, Other)
  Sender: FDA-Public Use
  Company Number: GB-BEH-2019105943

PATIENT
  Age: 29 Year
  Sex: Male

DRUGS (9)
  1. PIRITON [Concomitant]
     Active Substance: CHLORPHENIRAMINE MALEATE
     Route: 048
  2. CANNABIS [Concomitant]
     Active Substance: CANNABIS SATIVA SUBSP. INDICA TOP
     Route: 055
  3. COMMON PAPER WASP VENOM PROTEIN [Suspect]
     Active Substance: POLISTES FUSCATUS VENOM PROTEIN
     Indication: ALLERGY TO ARTHROPOD STING
     Dosage: 100 MICROGRAM, 15 MONTHS MAINTENANCE DOSE
     Route: 058
     Dates: start: 20170201
  4. COMMON PAPER WASP VENOM PROTEIN [Suspect]
     Active Substance: POLISTES FUSCATUS VENOM PROTEIN
     Indication: ALLERGY TO VENOM
  5. PARACETAMOL [Concomitant]
     Active Substance: ACETAMINOPHEN
     Route: 048
  6. ALBUMIN HUMAN (INN) [Suspect]
     Active Substance: ALBUMIN HUMAN
     Indication: ALLERGY TO ARTHROPOD STING
     Dosage: 15 MONTHS MAINTENANCE DOSE
     Route: 058
  7. COCAINE [Concomitant]
     Active Substance: COCAINE
     Route: 045
  8. IBUPROFEN. [Concomitant]
     Active Substance: IBUPROFEN
     Route: 048
  9. COMMON PAPER WASP VENOM PROTEIN [Suspect]
     Active Substance: POLISTES FUSCATUS VENOM PROTEIN
     Indication: IMMUNE TOLERANCE INDUCTION

REACTIONS (10)
  - Salivary hypersecretion [Recovered/Resolved]
  - Product use in unapproved indication [Unknown]
  - Head discomfort [Recovered/Resolved]
  - Throat irritation [Recovered/Resolved]
  - Muscle tightness [Recovered/Resolved]
  - No adverse event [Unknown]
  - Intentional product use issue [Unknown]
  - Anaphylactic reaction [Recovered/Resolved]
  - Mydriasis [Recovered/Resolved]
  - Wheezing [Recovered/Resolved]

NARRATIVE: CASE EVENT DATE: 20190508
